FAERS Safety Report 6808944-8 (Version None)
Quarter: 2010Q2

REPORT INFORMATION
  Report Type: 
  Country: None (occurrence: None)
  Receive Date: 20100630
  Receipt Date: 20091005
  Transmission Date: 20101027
  Serious: Yes (Hospitalization, Other)
  Sender: FDA-Public Use
  Company Number: US-PFIZER INC-2009244063

PATIENT
  Age: 78 Year
  Sex: Female

DRUGS (6)
  1. ZYVOX [Suspect]
     Indication: NOSOCOMIAL INFECTION
     Dosage: 600 MG, 2X/DAY
     Route: 048
     Dates: start: 20090702, end: 20090717
  2. LEVOFLOXACIN [Concomitant]
     Indication: INFECTION
     Dosage: 250 MG, 2X/DAY
     Route: 048
     Dates: start: 20090706, end: 20090720
  3. AMIODARONE HYDROCHLORIDE [Concomitant]
     Indication: ATRIAL FIBRILLATION
     Dosage: 200 MG, 2X/DAY
     Route: 048
     Dates: start: 20090622, end: 20090717
  4. ASPIRIN [Concomitant]
     Indication: CORONARY ARTERY DISEASE
     Dosage: 81 MG, 1X/DAY
     Route: 048
     Dates: start: 20090622, end: 20090710
  5. METOPROLOL TARTRATE [Concomitant]
     Indication: HYPERTENSION
     Dosage: 25 MG, 2X/DAY
     Route: 048
     Dates: start: 20090622
  6. WARFARIN [Concomitant]
     Dosage: UNK
     Route: 048
     Dates: start: 20090623

REACTIONS (1)
  - WHITE BLOOD CELL COUNT DECREASED [None]
